FAERS Safety Report 5452445-9 (Version None)
Quarter: 2007Q3

REPORT INFORMATION
  Report Type: 
  Country: None (occurrence: None)
  Receive Date: 20070914
  Receipt Date: 20070907
  Transmission Date: 20080115
  Serious: Yes (Disabling)
  Sender: FDA-Public Use
  Company Number: GB-ALLERGAN-0709857US

PATIENT
  Sex: Male
  Weight: 30 kg

DRUGS (1)
  1. DYSPORT [Suspect]
     Indication: DRUG USE FOR UNKNOWN INDICATION
     Dosage: 1500 UNITS, UNK
     Route: 030
     Dates: start: 20070417

REACTIONS (2)
  - DYSPHAGIA [None]
  - INFECTION [None]
